FAERS Safety Report 4533606-X (Version None)
Quarter: 2004Q4

REPORT INFORMATION
  Report Type: 
  Country: None (occurrence: None)
  Receive Date: 20041210
  Receipt Date: 20041005
  Transmission Date: 20050328
  Serious: Yes (Other)
  Sender: FDA-Public Use
  Company Number: A03200403361

PATIENT
  Age: 46 Year
  Sex: Female

DRUGS (5)
  1. ELOXATIN [Suspect]
     Indication: COLON CANCER
     Dosage: INTRAVENOUS NOS
     Route: 042
     Dates: start: 20040927, end: 20040927
  2. ELOXATIN [Suspect]
     Indication: METASTASES TO LIVER
     Dosage: INTRAVENOUS NOS
     Route: 042
     Dates: start: 20040927, end: 20040927
  3. PROCHLORPERAZINE MALEATE [Concomitant]
  4. FLUOROURACIL [Concomitant]
  5. LEUCOVORIN [Concomitant]

REACTIONS (6)
  - ABDOMINAL PAIN [None]
  - ANAPHYLACTIC REACTION [None]
  - BLOOD PRESSURE DECREASED [None]
  - CHILLS [None]
  - ERYTHEMA [None]
  - SWOLLEN TONGUE [None]
